FAERS Safety Report 12211507 (Version 1)
Quarter: 2016Q1

REPORT INFORMATION
  Report Type: Spontaneous
  Country: US (occurrence: US)
  Receive Date: 20160325
  Receipt Date: 20160325
  Transmission Date: 20160526
  Serious: No
  Sender: FDA-Public Use
  Company Number: US-KERYX BIOPHARMACEUTICALS, INC.-2015US001370

PATIENT
  Age: 69 Year
  Sex: Male
  Weight: 107 kg

DRUGS (6)
  1. AURYXIA [Suspect]
     Active Substance: TETRAFERRIC TRICITRATE DECAHYDRATE
     Indication: BLOOD PHOSPHORUS INCREASED
     Dosage: 2 TAB, TID WITH MEALS
     Route: 048
     Dates: start: 201510, end: 201510
  2. DIALYVITE 5000 [Concomitant]
     Active Substance: .ALPHA.-TOCOPHEROL SUCCINATE, D-\ASCORBIC ACID\BIOTIN\CALCIUM PANTOTHENATE\COBALAMIN\FOLIC ACID\NIACINAMIDE\PYRIDOXINE HYDROCHLORIDE\RIBOFLAVIN\SELENOCYSTEINE\THIAMINE MONONITRATE\ZINC CITRATE
     Dosage: 1 TAB, QD
     Route: 048
  3. ASPIRIN                            /00002701/ [Concomitant]
     Active Substance: ASPIRIN
     Dosage: 1 TAB, QD
     Route: 048
  4. PHOSLYRA [Concomitant]
     Active Substance: CALCIUM ACETATE
     Dosage: 667 MG (169 MG CALCIUM)/5 ML SOLUTION, 2 ML WITH MEALS AND 15 WITH SNACKS
     Dates: start: 20151209
  5. LANTUS [Concomitant]
     Active Substance: INSULIN GLARGINE
     Dosage: 16 UNIT 100 UNIT/ML, AT 11 AM
     Route: 058
  6. RENAPLEX [Concomitant]
     Dosage: 1 TAB, QD
     Route: 048

REACTIONS (1)
  - Abdominal pain upper [Recovered/Resolved]

NARRATIVE: CASE EVENT DATE: 201510
